FAERS Safety Report 12671313 (Version 1)
Quarter: 2016Q3

REPORT INFORMATION
  Report Type: Spontaneous
  Country: US (occurrence: US)
  Receive Date: 20160822
  Receipt Date: 20160822
  Transmission Date: 20161109
  Serious: No
  Sender: FDA-Public Use
  Company Number: US-TEVA-639233USA

PATIENT
  Age: 83 Year
  Sex: Female
  Weight: 65.31 kg

DRUGS (6)
  1. FEXOFENADINE [Suspect]
     Active Substance: FEXOFENADINE\FEXOFENADINE HYDROCHLORIDE
     Indication: NASOPHARYNGITIS
  2. LOVASTATIN. [Concomitant]
     Active Substance: LOVASTATIN
  3. FEXOFENADINE [Suspect]
     Active Substance: FEXOFENADINE\FEXOFENADINE HYDROCHLORIDE
     Indication: NASAL CONGESTION
  4. NAPROXEN. [Concomitant]
     Active Substance: NAPROXEN
     Dates: start: 201601
  5. LEVOTHYROXINE. [Concomitant]
     Active Substance: LEVOTHYROXINE
  6. FEXOFENADINE [Suspect]
     Active Substance: FEXOFENADINE\FEXOFENADINE HYDROCHLORIDE
     Indication: RHINORRHOEA
     Dosage: 180 MILLIGRAM DAILY;
     Route: 048
     Dates: start: 20160219, end: 20160219

REACTIONS (3)
  - Off label use [Recovered/Resolved]
  - Insomnia [Recovered/Resolved]
  - Drug administered to patient of inappropriate age [Recovered/Resolved]

NARRATIVE: CASE EVENT DATE: 20160219
